FAERS Safety Report 7027579-8 (Version None)
Quarter: 2010Q4

REPORT INFORMATION
  Report Type: 
  Country: None (occurrence: None)
  Receive Date: 20101004
  Receipt Date: 20100921
  Transmission Date: 20110411
  Serious: Yes (Other)
  Sender: FDA-Public Use
  Company Number: KP-WATSON-2010-12937

PATIENT
  Age: 50 Year
  Sex: Male

DRUGS (4)
  1. DEXAMETHASONE (WATSON LABORATORIES) [Suspect]
     Indication: SMALL CELL LUNG CANCER STAGE UNSPECIFIED
     Dosage: 12 MG, SINGLE
     Route: 042
     Dates: start: 20080101
  2. DEXAMETHASONE (WATSON LABORATORIES) [Suspect]
     Dosage: 8 MG, DAILY
     Route: 042
  3. ETOPOSIDE (WATSON LABORATORIES) [Suspect]
     Indication: SMALL CELL LUNG CANCER STAGE UNSPECIFIED
     Dosage: 100MG/MM DAY 1-3
     Route: 042
     Dates: start: 20080101, end: 20080201
  4. CISPLATIN [Suspect]
     Indication: SMALL CELL LUNG CANCER STAGE UNSPECIFIED
     Dosage: 60 MG/MM ON DAY 1
     Route: 042

REACTIONS (1)
  - AORTIC THROMBOSIS [None]
